FAERS Safety Report 25487294 (Version 4)
Quarter: 2025Q4

REPORT INFORMATION
  Report Type: Report from Study
  Country: US (occurrence: US)
  Receive Date: 20250627
  Receipt Date: 20251022
  Transmission Date: 20260117
  Serious: Yes (Congenital Anomaly)
  Sender: ROCHE
  Company Number: US-ROCHE-10000322280

PATIENT
  Sex: Female
  Weight: 2.812 kg

DRUGS (22)
  1. OCRELIZUMAB [Suspect]
     Active Substance: OCRELIZUMAB
     Indication: Product used for unknown indication
     Dosage: SECOND ADMINISTRATION DOSE(300MG) ON 12-AUG-2020
     Route: 064
     Dates: start: 20200722
  2. OCRELIZUMAB [Suspect]
     Active Substance: OCRELIZUMAB
     Dosage: SECOND ADMINISTRATION DOSE(600MG) ON 17-DEC-2021, 12-MAY-2022, 10-MAR-2023, 25-APR-2024, 31-MAR-2025
     Route: 064
     Dates: start: 20210608
  3. IBUPROFEN [Concomitant]
     Active Substance: IBUPROFEN
     Dates: start: 20220106, end: 20240916
  4. BUPROPION [Concomitant]
     Active Substance: BUPROPION
     Indication: Product used for unknown indication
     Dates: start: 2012
  5. ESCITALOPRAM OXALATE [Concomitant]
     Active Substance: ESCITALOPRAM OXALATE
     Indication: Product used for unknown indication
     Dates: start: 2012
  6. OMEPRAZOLE [Concomitant]
     Active Substance: OMEPRAZOLE
     Indication: Product used for unknown indication
     Dates: start: 2012
  7. ACETAMINOPHEN [Concomitant]
     Active Substance: ACETAMINOPHEN
     Indication: Product used for unknown indication
     Dates: start: 20220106, end: 20250430
  8. ONDANSETRON [Concomitant]
     Active Substance: ONDANSETRON
     Indication: Product used for unknown indication
     Dates: end: 20250430
  9. MONTELUKAST SODIUM [Concomitant]
     Active Substance: MONTELUKAST SODIUM
     Indication: Product used for unknown indication
     Dates: start: 20220324
  10. ALBUTEROL SULFATE [Concomitant]
     Active Substance: ALBUTEROL SULFATE
     Indication: Product used for unknown indication
     Dosage: 90 MCG/ACTUATION INHALER
     Dates: start: 20211229
  11. VITAMINS [Concomitant]
     Active Substance: VITAMINS
     Indication: Product used for unknown indication
     Dates: start: 20250204
  12. BUDESONIDE [Concomitant]
     Active Substance: BUDESONIDE
     Indication: Product used for unknown indication
     Dates: start: 20240925
  13. CETIRIZINE [Concomitant]
     Active Substance: CETIRIZINE HYDROCHLORIDE
     Indication: Product used for unknown indication
     Dates: start: 20250201, end: 20250203
  14. fluticasone furoate-vilanteroL (BREO ELLIPTA) 200-25 mcg/dose DsDv [Concomitant]
     Dates: start: 20220520, end: 20240925
  15. azelastine (ASTELIN READY-SPRAY) 137 mcg (0.1 %) nasal spray [Concomitant]
     Route: 045
     Dates: start: 20230320, end: 20240916
  16. ASPIRIN [Concomitant]
     Active Substance: ASPIRIN
     Dates: start: 20240815, end: 20241106
  17. LABETALOL [Concomitant]
     Active Substance: LABETALOL
     Dates: start: 20250203, end: 20250430
  18. INAPSINE [Concomitant]
     Active Substance: DROPERIDOL
  19. IOPAMIDOL [Concomitant]
     Active Substance: IOPAMIDOL
  20. FLUTICASONE FUROATE\VILANTEROL TRIFENATATE [Concomitant]
     Active Substance: FLUTICASONE FUROATE\VILANTEROL TRIFENATATE
  21. DIPHTHERIA AND TETANUS TOXOIDS AND PERTUSSIS VACCINE [Concomitant]
     Active Substance: DIPHTHERIA AND TETANUS TOXOIDS AND PERTUSSIS VACCINE
  22. BEBTELOVIMAB [Concomitant]
     Active Substance: BEBTELOVIMAB

REACTIONS (5)
  - Renal aplasia [Not Recovered/Not Resolved]
  - Foetal exposure during pregnancy [Unknown]
  - Congenital acrochordon [Unknown]
  - Cardiac murmur [Unknown]
  - Atrial septal defect [Unknown]

NARRATIVE: CASE EVENT DATE: 20250122
